FAERS Safety Report 4833316-5 (Version None)
Quarter: 2005Q4

REPORT INFORMATION
  Report Type: 
  Country: None (occurrence: None)
  Receive Date: 20051117
  Receipt Date: 20051104
  Transmission Date: 20060501
  Serious: Yes (Other)
  Sender: FDA-Public Use
  Company Number: A-JP2005-10957

PATIENT
  Age: 72 Year
  Sex: Female

DRUGS (2)
  1. TRACLEER [Suspect]
     Indication: PULMONARY HYPERTENSION
     Dosage: 62.5 MG, QD, ORAL
     Route: 048
     Dates: start: 20051025, end: 20051104
  2. EPOPROSTENOL SODIUM                             (EPOPROSTENOL SODIUM) [Concomitant]

REACTIONS (3)
  - GENERAL PHYSICAL CONDITION ABNORMAL [None]
  - HAEMOGLOBIN DECREASED [None]
  - PLATELET COUNT DECREASED [None]
